FAERS Safety Report 16122893 (Version 3)
Quarter: 2019Q2

REPORT INFORMATION
  Report Type: Report from Study
  Country: CA (occurrence: CA)
  Receive Date: 20190327
  Receipt Date: 20190416
  Transmission Date: 20190711
  Serious: Yes (Death, Hospitalization)
  Sender: FDA-Public Use
  Company Number: CA-B.I. PHARMACEUTICALS,INC./RIDGEFIELD-2019-BI-013141

PATIENT
  Age: 80 Year
  Sex: Male

DRUGS (1)
  1. OFEV [Suspect]
     Active Substance: NINTEDANIB
     Indication: IDIOPATHIC PULMONARY FIBROSIS
     Route: 048
     Dates: start: 20190128, end: 20190306

REACTIONS (7)
  - Death [Fatal]
  - Food aversion [Unknown]
  - Vomiting [Unknown]
  - Aortic aneurysm [Unknown]
  - Hypophagia [Not Recovered/Not Resolved]
  - Fall [Unknown]
  - Cerebral haemorrhage [Unknown]

NARRATIVE: CASE EVENT DATE: 20190306
